FAERS Safety Report 13834862 (Version 1)
Quarter: 2017Q3

REPORT INFORMATION
  Report Type: Spontaneous
  Country: US (occurrence: US)
  Receive Date: 20170804
  Receipt Date: 20170804
  Transmission Date: 20171127
  Serious: Yes (Other)
  Sender: FDA-Public Use
  Company Number: None

PATIENT
  Sex: Male
  Weight: 90.99 kg

DRUGS (13)
  1. DIGITEK [Concomitant]
     Active Substance: DIGOXIN
  2. IRON [Concomitant]
     Active Substance: IRON
  3. OCUVITE [Concomitant]
     Active Substance: VITAMINS
  4. DESMOPRESSIN [Suspect]
     Active Substance: DESMOPRESSIN
  5. RIVAROXABAN [Suspect]
     Active Substance: RIVAROXABAN
  6. HYDROCODONE [Suspect]
     Active Substance: HYDROCODONE
  7. CALCIUM [Concomitant]
     Active Substance: CALCIUM
  8. DIGOXIN. [Concomitant]
     Active Substance: DIGOXIN
  9. NITROSTATIN [Concomitant]
  10. DYMISTA [Concomitant]
     Active Substance: AZELASTINE HYDROCHLORIDE\FLUTICASONE PROPIONATE
  11. DIGOXIN. [Concomitant]
     Active Substance: DIGOXIN
  12. XARELTO [Concomitant]
     Active Substance: RIVAROXABAN
  13. VITAMIN B12 [Concomitant]
     Active Substance: CYANOCOBALAMIN

REACTIONS (1)
  - Pruritus [None]
